FAERS Safety Report 23596535 (Version 1)
Quarter: 2024Q1

REPORT INFORMATION
  Report Type: Spontaneous
  Country: US (occurrence: None)
  Receive Date: 20240304
  Receipt Date: 20240304
  Transmission Date: 20240410
  Serious: No
  Sender: FDA-Public Use
  Company Number: None

PATIENT
  Age: 59 Year
  Sex: Female
  Weight: 120.6 kg

DRUGS (5)
  1. SULFASALAZINE [Suspect]
     Active Substance: SULFASALAZINE
     Indication: Rheumatoid arthritis
     Dates: start: 20240102, end: 20240303
  2. NP THYROID [Concomitant]
     Active Substance: LEVOTHYROXINE\LIOTHYRONINE
  3. Hydrozine [Concomitant]
  4. PLAQUENIL [Concomitant]
     Active Substance: HYDROXYCHLOROQUINE SULFATE
  5. Hyrdochlorathiazide [Concomitant]

REACTIONS (23)
  - Decreased appetite [None]
  - Dysphagia [None]
  - Oral pain [None]
  - Oral pain [None]
  - Rash pruritic [None]
  - Rash [None]
  - Rash [None]
  - Rash [None]
  - Burning sensation [None]
  - Generalised oedema [None]
  - Swelling face [None]
  - Weight increased [None]
  - Feeding disorder [None]
  - Adverse drug reaction [None]
  - Skin exfoliation [None]
  - Feeling hot [None]
  - Dark circles under eyes [None]
  - Skin discolouration [None]
  - Arthralgia [None]
  - Arthralgia [None]
  - Arthralgia [None]
  - Fatigue [None]
  - Skin exfoliation [None]

NARRATIVE: CASE EVENT DATE: 20240304
